FAERS Safety Report 5877936-8 (Version None)
Quarter: 2008Q3

REPORT INFORMATION
  Report Type: 
  Country: None (occurrence: None)
  Receive Date: 20080911
  Receipt Date: 20080901
  Transmission Date: 20090109
  Serious: Yes (Hospitalization)
  Sender: FDA-Public Use
  Company Number: B0534445A

PATIENT
  Age: 52 Year
  Sex: Female
  Weight: 85 kg

DRUGS (6)
  1. LAPATINIB [Suspect]
     Indication: BREAST CANCER
     Dosage: 1000MG PER DAY
     Route: 048
     Dates: start: 20080327
  2. TRASTUZUMAB [Suspect]
     Indication: BREAST CANCER
     Dosage: 6MGK CYCLIC
     Route: 042
     Dates: start: 20080327
  3. VOLTAREN [Concomitant]
     Indication: ARTHRALGIA
     Dosage: 75MG PER DAY
     Route: 048
     Dates: start: 20080731
  4. NEXIUM [Concomitant]
     Indication: GASTROENTERITIS
     Dosage: 40MG PER DAY
     Route: 048
     Dates: start: 20080731
  5. MAGNESIUM SULFATE [Concomitant]
     Indication: MUSCLE SPASMS
     Dosage: 240MG PER DAY
     Route: 048
     Dates: start: 20080731
  6. SANDOZ CALCIUM [Concomitant]
     Indication: BONE PAIN
     Dosage: 880MG PER DAY
     Route: 048
     Dates: start: 20080621

REACTIONS (4)
  - ANOREXIA [None]
  - DISCOMFORT [None]
  - DIZZINESS [None]
  - VERTIGO [None]
